FAERS Safety Report 9223416 (Version 1)
Quarter: 2013Q2

REPORT INFORMATION
  Report Type: Spontaneous
  Country: IT (occurrence: IT)
  Receive Date: 20130410
  Receipt Date: 20130410
  Transmission Date: 20140414
  Serious: Yes (Hospitalization)
  Sender: FDA-Public Use
  Company Number: IT-MERCK-1304ITA003342

PATIENT
  Age: 54 Year
  Sex: Male

DRUGS (6)
  1. REMERON [Suspect]
     Indication: INTENTIONAL SELF-INJURY
     Dosage: 13 DF, ONCE
     Route: 048
     Dates: start: 20130330, end: 20130330
  2. REMERON [Suspect]
     Route: 048
  3. RIVOTRIL [Suspect]
     Dosage: 7 DF, ONCE
     Route: 048
     Dates: start: 20130330, end: 20130330
  4. RIVOTRIL [Suspect]
     Route: 048
  5. MICARDIS [Concomitant]
  6. MODITEN DEPOT (FLUPHENAZINE DECANOATE) [Concomitant]
     Dosage: 1 DF, QM

REACTIONS (3)
  - Intentional overdose [Recovered/Resolved]
  - Intentional self-injury [Recovered/Resolved]
  - Sopor [Recovered/Resolved]
